FAERS Safety Report 9473812 (Version 3)
Quarter: 2014Q3

REPORT INFORMATION
  Report Type: Spontaneous
  Country: US (occurrence: US)
  Receive Date: 20130823
  Receipt Date: 20140808
  Transmission Date: 20150326
  Serious: Yes (Hospitalization, Other)
  Sender: FDA-Public Use
  Company Number: US-BRISTOL-MYERS SQUIBB COMPANY-17012543

PATIENT
  Age: 41 Year
  Sex: Male
  Weight: 65.76 kg

DRUGS (6)
  1. CYMBALTA [Concomitant]
     Active Substance: DULOXETINE HYDROCHLORIDE
     Indication: DEPRESSION
     Dosage: PILLS
     Route: 048
     Dates: start: 201011
  2. ONDANSETRON [Concomitant]
     Active Substance: ONDANSETRON
     Dosage: AT BED TIME
     Route: 048
  3. ALPRAZOLAM. [Concomitant]
     Active Substance: ALPRAZOLAM
     Indication: ANXIETY
     Dosage: 0.5MG PILL - AS NEEDED
     Route: 048
     Dates: start: 201011
  4. NEXIUM [Concomitant]
     Active Substance: ESOMEPRAZOLE MAGNESIUM
  5. SPRYCEL [Suspect]
     Active Substance: DASATINIB
     Indication: CHRONIC MYELOID LEUKAEMIA
     Dosage: 2ND DOSE:(2) SPRYCEL 50 MG TABLETS DAILY?100MG PILL
     Route: 048
     Dates: start: 20120108
  6. ATIVAN [Concomitant]
     Active Substance: LORAZEPAM

REACTIONS (9)
  - Normal newborn [Unknown]
  - Musculoskeletal pain [Unknown]
  - Muscle spasms [Unknown]
  - Hypoaesthesia [Unknown]
  - Diarrhoea [Unknown]
  - Weight increased [Unknown]
  - Pregnancy [Unknown]
  - Exposure via father [Unknown]
  - Nausea [Unknown]

NARRATIVE: CASE EVENT DATE: 20130501
